FAERS Safety Report 8596701-4 (Version None)
Quarter: 2012Q3

REPORT INFORMATION
  Report Type: 
  Country: None (occurrence: None)
  Receive Date: 20120815
  Receipt Date: 20120806
  Transmission Date: 20120928
  Serious: Yes (Other)
  Sender: FDA-Public Use
  Company Number: US-ASTRAZENECA-2012SE55323

PATIENT
  Age: 40 Year
  Sex: Male

DRUGS (4)
  1. SEROQUEL XR [Suspect]
     Indication: BIPOLAR DISORDER
     Route: 048
     Dates: end: 20110101
  2. SEROQUEL XR [Suspect]
     Route: 048
     Dates: start: 20110101
  3. LAMOTRIGINE [Concomitant]
     Route: 048
  4. FLUOXETINE HCL [Concomitant]

REACTIONS (6)
  - CLAVICLE FRACTURE [None]
  - SOMNOLENCE [None]
  - YAWNING [None]
  - WEIGHT INCREASED [None]
  - ROAD TRAFFIC ACCIDENT [None]
  - URTICARIA [None]
